FAERS Safety Report 20148456 (Version 3)
Quarter: 2022Q1

REPORT INFORMATION
  Report Type: Spontaneous
  Country: PT (occurrence: PT)
  Receive Date: 20211205
  Receipt Date: 20220124
  Transmission Date: 20220424
  Serious: Yes (Other)
  Sender: FDA-Public Use
  Company Number: PT-AUROBINDO-AUR-APL-2021-049259

PATIENT
  Age: 4 Year
  Sex: Female

DRUGS (6)
  1. ITRACONAZOLE [Suspect]
     Active Substance: ITRACONAZOLE
     Indication: Mucocutaneous candidiasis
     Dosage: 5 MILLIGRAM/KILOGRAM, ONCE A DAY
     Route: 048
  2. KETOCONAZOLE [Suspect]
     Active Substance: KETOCONAZOLE
     Indication: Mucocutaneous candidiasis
     Dosage: 20 MILLIGRAM PER GRAM, DAILY
     Route: 061
  3. TERBINAFINE [Suspect]
     Active Substance: TERBINAFINE
     Indication: Mucocutaneous candidiasis
     Dosage: 20 MILLIGRAM PER GRAM, DAILY
     Route: 061
  4. IMIQUIMOD [Suspect]
     Active Substance: IMIQUIMOD
     Indication: Mucocutaneous candidiasis
     Dosage: 1 SACHET, EVERY WEEK (TWICE A WEEK)
     Route: 061
  5. CICLOPIROX [Concomitant]
     Active Substance: CICLOPIROX
     Indication: Mucocutaneous candidiasis
     Dosage: UNK
     Route: 065
  6. FLUCONAZOLE [Concomitant]
     Active Substance: FLUCONAZOLE
     Indication: Mucocutaneous candidiasis
     Dosage: 4 MILLIGRAM/KILOGRAM, ONCE A DAY
     Route: 065

REACTIONS (3)
  - Skin lesion [Recovering/Resolving]
  - Hepatotoxicity [Unknown]
  - Drug ineffective [Unknown]
